FAERS Safety Report 6030079-5 (Version None)
Quarter: 2009Q1

REPORT INFORMATION
  Report Type: 
  Country: None (occurrence: None)
  Receive Date: 20090106
  Receipt Date: 20090106
  Transmission Date: 20090719
  Serious: No
  Sender: FDA-Public Use
  Company Number: None

PATIENT
  Age: 11 Year
  Sex: Male
  Weight: 24.0406 kg

DRUGS (1)
  1. DIVALPROEX SODIUM [Suspect]
     Indication: AFFECTIVE DISORDER
     Dosage: 125 MG 1 IN AM, 2 AT HS PO
     Route: 048
     Dates: start: 20081001, end: 20081130

REACTIONS (3)
  - MOOD ALTERED [None]
  - SCHOOL REFUSAL [None]
  - THERAPEUTIC RESPONSE UNEXPECTED WITH DRUG SUBSTITUTION [None]
